FAERS Safety Report 21590276 (Version 1)
Quarter: 2022Q4

REPORT INFORMATION
  Report Type: Spontaneous
  Country: ES (occurrence: ES)
  Receive Date: 20221114
  Receipt Date: 20221114
  Transmission Date: 20230113
  Serious: Yes (Hospitalization)
  Sender: FDA-Public Use
  Company Number: None

PATIENT
  Age: 93 Year
  Sex: Female
  Weight: 60 kg

DRUGS (9)
  1. JARDIANCE [Suspect]
     Active Substance: EMPAGLIFLOZIN
     Indication: Diabetes mellitus
     Route: 048
     Dates: start: 20220907, end: 20221031
  2. SINTROM [Suspect]
     Active Substance: ACENOCOUMAROL
     Indication: Coagulopathy
     Route: 048
     Dates: start: 20210831
  3. ALDACTONE [Suspect]
     Active Substance: SPIRONOLACTONE
     Indication: Fluid retention
     Route: 048
     Dates: start: 20220906
  4. MIRTAZAPINE [Suspect]
     Active Substance: MIRTAZAPINE
     Indication: Depression
     Route: 048
     Dates: start: 20140522
  5. CALCIFEDIOL [Suspect]
     Active Substance: CALCIFEDIOL
     Indication: Vitamin D deficiency
     Dosage: ONE CAPSULE WEEKLY FOR TWO MONTHS, TO CONTINUE WITH ONE CAPSULE EVERY 15 DAYS FOR ONE MONTH AND LATE
     Route: 048
     Dates: start: 20220906
  6. ALOPURINOL NORMON 100 mg COMPRIMIDOS EFG , 100 comprimidos [Concomitant]
     Indication: Hyperuricaemia
     Route: 048
     Dates: start: 20140522
  7. FUROSEMIDA CINFA 40 mg COMPRIMIDOS EFG, 30 comprimidos [Concomitant]
     Indication: Polyuria
     Route: 048
     Dates: start: 20211119
  8. AMLODIPINO CINFA 5 mg COMPRIMIDOS EFG , 30 comprimidos [Concomitant]
     Indication: Cardiac failure
     Route: 048
     Dates: start: 20220503
  9. BELMALIP 40 mg COMPRIMIDOS RECUBIERTOS, 28 comprimidos [Concomitant]
     Indication: Product used for unknown indication

REACTIONS (2)
  - Diarrhoea [Not Recovered/Not Resolved]
  - International normalised ratio increased [Not Recovered/Not Resolved]

NARRATIVE: CASE EVENT DATE: 20221017
